FAERS Safety Report 14142723 (Version 2)
Quarter: 2020Q4

REPORT INFORMATION
  Report Type: Spontaneous
  Country: US (occurrence: US)
  Receive Date: 20171030
  Receipt Date: 20201117
  Transmission Date: 20210113
  Serious: Yes (Other)
  Sender: FDA-Public Use
  Company Number: US-TAKEDA-2017TUS022117

PATIENT
  Sex: Male

DRUGS (1)
  1. ENTYVIO [Suspect]
     Active Substance: VEDOLIZUMAB
     Indication: CROHN^S DISEASE
     Dosage: 300 MILLIGRAM
     Route: 065
     Dates: start: 20170928

REACTIONS (4)
  - Fatigue [Recovered/Resolved]
  - Arthralgia [Not Recovered/Not Resolved]
  - Rectal stenosis [Not Recovered/Not Resolved]
  - Drug ineffective [Unknown]
